FAERS Safety Report 4383884-5 (Version None)
Quarter: 2004Q2

REPORT INFORMATION
  Report Type: 
  Country: None (occurrence: None)
  Receive Date: 20040623
  Receipt Date: 20040623
  Transmission Date: 20050107
  Serious: Yes (Life-Threatening, Disabling)
  Sender: FDA-Public Use
  Company Number: None

PATIENT
  Age: 46 Year
  Sex: Female
  Weight: 108.8633 kg

DRUGS (5)
  1. SEROQUEL [Suspect]
     Indication: BIPOLAR DISORDER
     Dosage: 200 MGS BEDTIME
     Dates: start: 20010101, end: 20020101
  2. NEURONTIN [Concomitant]
  3. PAXIL [Concomitant]
  4. SEROQUEL [Concomitant]
  5. CELEXA [Concomitant]

REACTIONS (1)
  - DIABETES MELLITUS [None]
